FAERS Safety Report 25721943 (Version 1)
Quarter: 2025Q3

REPORT INFORMATION
  Report Type: Spontaneous
  Country: AU (occurrence: AU)
  Receive Date: 20250825
  Receipt Date: 20250825
  Transmission Date: 20251020
  Serious: Yes (Death, Hospitalization)
  Sender: MERCK SHARP & DOHME LLC
  Company Number: AU-009507513-2321675

PATIENT
  Age: 35 Year
  Sex: Male

DRUGS (1)
  1. PEMBROLIZUMAB [Suspect]
     Active Substance: PEMBROLIZUMAB
     Indication: Thymic cancer metastatic

REACTIONS (2)
  - Ventricular tachycardia [Fatal]
  - Immune-mediated myocarditis [Fatal]
